FAERS Safety Report 10412588 (Version 1)
Quarter: 2014Q3

REPORT INFORMATION
  Report Type: Spontaneous
  Country: US (occurrence: None)
  Receive Date: 20140826
  Receipt Date: 20140826
  Transmission Date: 20150326
  Serious: Yes (Other)
  Sender: FDA-Public Use
  Company Number: None

PATIENT
  Age: 48 Year
  Sex: Female
  Weight: 58.06 kg

DRUGS (2)
  1. DOXYCYCLINE. [Suspect]
     Active Substance: DOXYCYCLINE
     Indication: PROPHYLAXIS
     Dates: start: 20140802, end: 20140802
  2. DOXYCYCLINE. [Suspect]
     Active Substance: DOXYCYCLINE
     Indication: SKIN NEOPLASM EXCISION
     Dates: start: 20140802, end: 20140802

REACTIONS (5)
  - Foreign body [None]
  - Oesophageal pain [None]
  - Nausea [None]
  - Hyperhidrosis [None]
  - Lacrimation increased [None]

NARRATIVE: CASE EVENT DATE: 20140802
